FAERS Safety Report 5470836-7 (Version None)
Quarter: 2007Q3

REPORT INFORMATION
  Report Type: 
  Country: None (occurrence: None)
  Receive Date: 20070928
  Receipt Date: 20070920
  Transmission Date: 20080115
  Serious: Yes (Other)
  Sender: FDA-Public Use
  Company Number: US-ASTRAZENECA-2007UW21599

PATIENT
  Age: 80 Year
  Sex: Male

DRUGS (4)
  1. SEROQUEL [Suspect]
     Indication: AGITATION
     Route: 048
     Dates: start: 20070807, end: 20070811
  2. SEROQUEL [Suspect]
     Indication: PALLIATIVE CARE
     Route: 048
     Dates: start: 20070807, end: 20070811
  3. REGLAN [Concomitant]
  4. XANAX [Concomitant]

REACTIONS (1)
  - HEPATITIS ACUTE [None]
